FAERS Safety Report 4939270-X (Version None)
Quarter: 2006Q1

REPORT INFORMATION
  Report Type: 
  Country: None (occurrence: None)
  Receive Date: 20060306
  Receipt Date: 20060223
  Transmission Date: 20060701
  Serious: Yes (Hospitalization)
  Sender: FDA-Public Use
  Company Number: FR200602004485

PATIENT
  Age: 52 Year
  Sex: Female
  Weight: 73 kg

DRUGS (15)
  1. PROZAC [Suspect]
     Indication: DEPRESSION
     Dosage: ORAL
     Route: 048
     Dates: end: 20051226
  2. ALLOPURINOL [Concomitant]
  3. RIMIVON /GFR/ (ISONIAZID) [Concomitant]
  4. NICOPATCH (NICOTINE) [Concomitant]
  5. OMEPRAZOLE [Concomitant]
  6. XANAX /USA/ (ALPRAZOLAM) [Concomitant]
  7. ZOVIRAX /SCH/ (ACICLOVIR SODIUM) [Concomitant]
  8. BACTRIM [Concomitant]
  9. IMOVANE (ZOPICLONE) [Concomitant]
  10. MORPHINE SULFATE [Concomitant]
  11. MORPHINE SULFATE [Concomitant]
  12. DOXORUBICIN HCL [Concomitant]
  13. VINCRISTINE [Concomitant]
  14. DEXAMETHASONE SODIUM PHOSPHATE [Concomitant]
  15. ZOFRAN [Concomitant]

REACTIONS (12)
  - EPISTAXIS [None]
  - FACE OEDEMA [None]
  - HALLUCINATION [None]
  - HEPATIC FAILURE [None]
  - HYPONATRAEMIA [None]
  - HYPOXIA [None]
  - INTERSTITIAL LUNG DISEASE [None]
  - LUNG NEOPLASM [None]
  - MEMORY IMPAIRMENT [None]
  - OEDEMA [None]
  - PLEURAL EFFUSION [None]
  - RHABDOMYOLYSIS [None]
